FAERS Safety Report 19213307 (Version 1)
Quarter: 2021Q2

REPORT INFORMATION
  Report Type: Spontaneous
  Country: FR (occurrence: FR)
  Receive Date: 20210504
  Receipt Date: 20210504
  Transmission Date: 20210717
  Serious: Yes (Other)
  Sender: FDA-Public Use
  Company Number: NVSC2021FR099359

PATIENT
  Age: 65 Year

DRUGS (1)
  1. LIFITEGRAST [Suspect]
     Active Substance: LIFITEGRAST
     Indication: CHRONIC GRAFT VERSUS HOST DISEASE IN EYE
     Dosage: UNK
     Route: 061

REACTIONS (3)
  - Corneal perforation [Unknown]
  - Product use in unapproved indication [Unknown]
  - Keratitis bacterial [Unknown]
